FAERS Safety Report 6627164-3 (Version None)
Quarter: 2010Q1

REPORT INFORMATION
  Report Type: 
  Country: None (occurrence: None)
  Receive Date: 20100311
  Receipt Date: 20091110
  Transmission Date: 20100710
  Serious: No
  Sender: FDA-Public Use
  Company Number: A0816688A

PATIENT
  Age: 64 Year
  Sex: Female

DRUGS (2)
  1. NICORETTE [Suspect]
  2. NICODERM CQ [Suspect]

REACTIONS (5)
  - APPLICATION SITE ERYTHEMA [None]
  - MASTICATION DISORDER [None]
  - NERVOUSNESS [None]
  - NICOTINE DEPENDENCE [None]
  - PAIN IN JAW [None]
